FAERS Safety Report 15456165 (Version 1)
Quarter: 2018Q4

REPORT INFORMATION
  Report Type: Spontaneous
  Country: US (occurrence: US)
  Receive Date: 20181002
  Receipt Date: 20181002
  Transmission Date: 20190204
  Serious: Yes (Other)
  Sender: FDA-Public Use
  Company Number: US-SA-2018SA270292

PATIENT
  Age: 52 Year
  Sex: Male
  Weight: 73.48 kg

DRUGS (13)
  1. DIPHENHYDRAMINE. [Concomitant]
     Active Substance: DIPHENHYDRAMINE
     Indication: ANAPHYLACTIC REACTION
     Dosage: 25 MG, PRN
     Route: 042
     Dates: start: 20180924
  2. METOPROLOL SUCCINATE. [Concomitant]
     Active Substance: METOPROLOL SUCCINATE
     Dosage: 1 DF, QD
     Route: 048
     Dates: start: 20180920
  3. METHYLPREDNISOLONE. [Concomitant]
     Active Substance: METHYLPREDNISOLONE
     Indication: ANAPHYLACTIC REACTION
     Dosage: 125 MG, PRN
     Route: 042
     Dates: start: 20180924
  4. SODIUM CHLORIDE. [Concomitant]
     Active Substance: SODIUM CHLORIDE
     Dosage: 0.9 %
     Route: 042
     Dates: start: 20180924
  5. STERILE WATER [Concomitant]
     Active Substance: WATER
     Dosage: 1 DOSE IV AS DIRECTED
     Route: 042
     Dates: start: 20180924
  6. VITAMIN C [ASCORBIC ACID] [Concomitant]
     Dosage: 1 DF, QD
     Route: 048
     Dates: start: 20180920
  7. NORMAL SALINE [Concomitant]
     Active Substance: SODIUM CHLORIDE
     Dosage: 0.9 % AS DIRECTED
     Route: 042
     Dates: start: 20180924
  8. EPINEPHRINE. [Concomitant]
     Active Substance: EPINEPHRINE
     Indication: ANAPHYLACTIC REACTION
     Dosage: 0.3 MG, PRN
     Route: 030
     Dates: start: 20180924
  9. ACETAMINOPHEN. [Concomitant]
     Active Substance: ACETAMINOPHEN
     Indication: PREMEDICATION
     Dosage: 650 MG PRIOR TO INFUSION
     Route: 048
     Dates: start: 20180924
  10. LOSARTAN. [Concomitant]
     Active Substance: LOSARTAN
     Dosage: 0.5 DF, QD
     Route: 048
     Dates: start: 20180920
  11. FABRAZYME [Suspect]
     Active Substance: AGALSIDASE BETA
     Indication: LIPIDOSIS
     Dosage: 75 MG, QOW
     Route: 041
  12. HEPARIN [Concomitant]
     Active Substance: HEPARIN SODIUM
     Dosage: 100 UN/ML AS DIRECTED
     Route: 042
     Dates: start: 20180924
  13. LORATADINE. [Concomitant]
     Active Substance: LORATADINE
     Indication: PREMEDICATION
     Dosage: 10 MG BY MOUTH PRIOR TO INFUSION
     Route: 048
     Dates: start: 20180924

REACTIONS (1)
  - Chills [Unknown]
